FAERS Safety Report 5363069-6 (Version None)
Quarter: 2007Q2

REPORT INFORMATION
  Report Type: 
  Country: None (occurrence: None)
  Receive Date: 20070615
  Receipt Date: 20070608
  Transmission Date: 20071010
  Serious: Yes (Hospitalization, Other)
  Sender: FDA-Public Use
  Company Number: 163-20785-07020704

PATIENT
  Age: 64 Year
  Sex: Female

DRUGS (8)
  1. THALOMID [Suspect]
     Indication: MULTIPLE MYELOMA
     Dosage: 50 MG, 1 IN 1 D, ORAL
     Route: 048
  2. METOCLOPRAMIDE (METOCLOPRAMIDE) [Concomitant]
  3. PAXIL CR [Concomitant]
  4. LASIX [Concomitant]
  5. EFFEXOR XR [Concomitant]
  6. LORAZEPRAM (LORAZEPAM) [Concomitant]
  7. FLORINEF [Concomitant]
  8. PROPOXYPHENE (DEXTROPROPOXYPHENE) [Concomitant]

REACTIONS (4)
  - FALL [None]
  - FEMUR FRACTURE [None]
  - HYPOTENSION [None]
  - LOWER LIMB FRACTURE [None]
